FAERS Safety Report 15370305 (Version 1)
Quarter: 2018Q3

REPORT INFORMATION
  Report Type: Report from Study
  Country: GB (occurrence: GB)
  Receive Date: 20180911
  Receipt Date: 20180911
  Transmission Date: 20181010
  Serious: Yes (Other)
  Sender: FDA-Public Use
  Company Number: GB-PFIZER INC-2018359714

PATIENT
  Age: 30 Year
  Sex: Female

DRUGS (3)
  1. CANNABIS SATIVA [Concomitant]
     Active Substance: CANNABIS SATIVA SUBSP. SATIVA FLOWERING TOP
     Indication: EPILEPSY
     Dosage: UNK
  2. LEVETIRACETAM. [Suspect]
     Active Substance: LEVETIRACETAM
     Indication: EPILEPSY
     Dosage: UNK
  3. CANNABIDIOL [Concomitant]
     Active Substance: CANNABIDIOL
     Indication: EPILEPSY
     Dosage: UNK

REACTIONS (7)
  - Insomnia [Recovered/Resolved]
  - Suicidal ideation [Unknown]
  - Depression [Unknown]
  - Irritability [Recovered/Resolved]
  - Feeling abnormal [Unknown]
  - Malaise [Unknown]
  - Ocular hyperaemia [Unknown]
